FAERS Safety Report 4404251-1 (Version None)
Quarter: 2004Q3

REPORT INFORMATION
  Report Type: 
  Country: None (occurrence: None)
  Receive Date: 20040722
  Receipt Date: 20040713
  Transmission Date: 20050211
  Serious: Yes (Other)
  Sender: FDA-Public Use
  Company Number: 200415269US

PATIENT
  Sex: 0

DRUGS (2)
  1. TAXOTERE [Suspect]
     Dosage: DOSE: UNK
  2. ADRIAMYCIN PFS [Concomitant]

REACTIONS (1)
  - CARDIOTOXICITY [None]
